FAERS Safety Report 4830015-0 (Version None)
Quarter: 2005Q4

REPORT INFORMATION
  Report Type: 
  Country: None (occurrence: None)
  Receive Date: 20051117
  Receipt Date: 20051117
  Transmission Date: 20060501
  Serious: Yes (Hospitalization, Disabling)
  Sender: FDA-Public Use
  Company Number: None

PATIENT
  Age: 14 Year
  Sex: Male
  Weight: 89.8 kg

DRUGS (2)
  1. ACCUTANE [Suspect]
     Indication: ACNE
     Dosage: 40 MG  2 PER DAY ORAL
     Route: 048
     Dates: start: 19890216, end: 19950319
  2. TYLENOL(ACETAMINOPHEN) [Concomitant]

REACTIONS (69)
  - ABDOMINAL DISTENSION [None]
  - ABDOMINAL PAIN UPPER [None]
  - ACNE [None]
  - ALANINE AMINOTRANSFERASE INCREASED [None]
  - ARTHRALGIA [None]
  - ASTHENIA [None]
  - BACK PAIN [None]
  - BLOOD ALKALINE PHOSPHATASE INCREASED [None]
  - BLOOD MAGNESIUM DECREASED [None]
  - BLOOD PHOSPHORUS DECREASED [None]
  - BLOOD POTASSIUM DECREASED [None]
  - BLOOD PRESSURE INADEQUATELY CONTROLLED [None]
  - BONE METABOLISM DISORDER [None]
  - CHEST DISCOMFORT [None]
  - CHEST PAIN [None]
  - COMPLICATIONS OF TRANSPLANT SURGERY [None]
  - COMPLICATIONS OF TRANSPLANTED KIDNEY [None]
  - CONDITION AGGRAVATED [None]
  - CONJUNCTIVITIS [None]
  - COUGH [None]
  - DECREASED APPETITE [None]
  - DEHYDRATION [None]
  - DIALYSIS [None]
  - DRUG LEVEL DECREASED [None]
  - DYSPEPSIA [None]
  - EPIGASTRIC DISCOMFORT [None]
  - EPISTAXIS [None]
  - FATIGUE [None]
  - FRACTURE [None]
  - GLOMERULONEPHRITIS [None]
  - GLOMERULOSCLEROSIS [None]
  - HAEMATOCRIT DECREASED [None]
  - HAEMATURIA [None]
  - HAEMOGLOBIN DECREASED [None]
  - HYPERGLYCAEMIA [None]
  - HYPERLIPIDAEMIA [None]
  - HYPERTENSION [None]
  - INJURY [None]
  - KIDNEY SMALL [None]
  - KIDNEY TRANSPLANT REJECTION [None]
  - LABORATORY TEST ABNORMAL [None]
  - MULTI-ORGAN DISORDER [None]
  - MUSCLE SPASMS [None]
  - MYOSITIS [None]
  - NAUSEA [None]
  - NIGHT BLINDNESS [None]
  - OBESITY [None]
  - OSTEITIS [None]
  - PARAESTHESIA [None]
  - PHARYNGITIS [None]
  - PHARYNGOLARYNGEAL PAIN [None]
  - PLATELET COUNT INCREASED [None]
  - PROTEIN URINE PRESENT [None]
  - PROTEINURIA [None]
  - PYREXIA [None]
  - RED BLOOD CELL COUNT INCREASED [None]
  - REFLUX OESOPHAGITIS [None]
  - RENAL DISORDER [None]
  - RENAL FAILURE [None]
  - RENAL FAILURE CHRONIC [None]
  - RENAL TRANSPLANT [None]
  - RHINITIS ALLERGIC [None]
  - SKIN PAPILLOMA [None]
  - TREMOR [None]
  - UPPER RESPIRATORY TRACT INFECTION [None]
  - URINE ANALYSIS ABNORMAL [None]
  - URTICARIA [None]
  - VIRAL INFECTION [None]
  - WHITE BLOOD CELL COUNT INCREASED [None]
